FAERS Safety Report 9424198 (Version 2)
Quarter: 2013Q3

REPORT INFORMATION
  Report Type: Other
  Country: JP (occurrence: JP)
  Receive Date: 20130729
  Receipt Date: 20130814
  Transmission Date: 20140515
  Serious: Yes (Other)
  Sender: FDA-Public Use
  Company Number: JP-BRISTOL-MYERS SQUIBB COMPANY-19145234

PATIENT
  Age: 87 Year
  Sex: Female

DRUGS (2)
  1. ABATACEPT [Suspect]
  2. PREDNISOLONE [Suspect]

REACTIONS (3)
  - Diverticulum intestinal [Unknown]
  - Gastrointestinal perforation [Unknown]
  - Compression fracture [Unknown]
